FAERS Safety Report 19020795 (Version 1)
Quarter: 2021Q1

REPORT INFORMATION
  Report Type: Spontaneous
  Country: JP (occurrence: JP)
  Receive Date: 20210317
  Receipt Date: 20210317
  Transmission Date: 20210420
  Serious: Yes (Hospitalization, Other)
  Sender: FDA-Public Use
  Company Number: JP-GLAXOSMITHKLINE-JP2021JPN059174

PATIENT
  Age: 77 Year
  Sex: Female

DRUGS (2)
  1. ACYCLOVIR. [Suspect]
     Active Substance: ACYCLOVIR
     Indication: HERPES ZOSTER
     Dosage: 125 MG
     Route: 041
  2. VALACICLOVIR HYDROCHLORIDE [Suspect]
     Active Substance: VALACYCLOVIR HYDROCHLORIDE
     Indication: HERPES ZOSTER
     Dosage: 3000 MG, 1D
     Route: 048

REACTIONS (9)
  - Toxic encephalopathy [Unknown]
  - Brain stem infarction [Unknown]
  - Delirium [Unknown]
  - Prescribed overdose [Unknown]
  - Altered state of consciousness [Recovering/Resolving]
  - Vomiting [Unknown]
  - Dyslalia [Unknown]
  - Gait disturbance [Unknown]
  - Hyponatraemia [Unknown]
